FAERS Safety Report 17858759 (Version 2)
Quarter: 2020Q2

REPORT INFORMATION
  Report Type: Report from Study
  Country: None (occurrence: US)
  Receive Date: 20200604
  Receipt Date: 20200605
  Transmission Date: 20200714
  Serious: No
  Sender: FDA-Public Use
  Company Number: US-US WORLDMEDS, LLC-USW201912-002334

PATIENT
  Sex: Male
  Weight: 68.9 kg

DRUGS (9)
  1. VITAMIN D [Concomitant]
     Active Substance: VITAMIN D NOS
  2. CLOPIDOGREL [Concomitant]
     Active Substance: CLOPIDOGREL BISULFATE
  3. MEMANTINE. [Concomitant]
     Active Substance: MEMANTINE
  4. RYTARY [Concomitant]
     Active Substance: CARBIDOPA\LEVODOPA
     Dosage: 95 MG, 3 TABLET TWICE DAILY AND 2 TABLET TWICE DAILY
  5. ESCITALOPRAM [Concomitant]
     Active Substance: ESCITALOPRAM OXALATE
  6. VITAMIN B12 [Concomitant]
     Active Substance: CYANOCOBALAMIN
  7. DONEPEZIL. [Concomitant]
     Active Substance: DONEPEZIL
  8. NUPLAZID [Concomitant]
     Active Substance: PIMAVANSERIN TARTRATE
  9. APOKYN [Suspect]
     Active Substance: APOMORPHINE HYDROCHLORIDE
     Indication: PARKINSON^S DISEASE
     Route: 058
     Dates: start: 20161101

REACTIONS (3)
  - Lacrimation increased [Recovered/Resolved]
  - Rhinorrhoea [Recovered/Resolved]
  - Somnolence [Recovered/Resolved]
